FAERS Safety Report 11920164 (Version 1)
Quarter: 2016Q1

REPORT INFORMATION
  Report Type: Spontaneous
  Country: SE (occurrence: SE)
  Receive Date: 20160115
  Receipt Date: 20160115
  Transmission Date: 20160526
  Serious: Yes (Hospitalization)
  Sender: FDA-Public Use
  Company Number: SE-TEVA-625681ISR

PATIENT
  Age: 60 Year
  Sex: Female

DRUGS (2)
  1. ZOPICLONE [Suspect]
     Active Substance: ZOPICLONE
     Route: 065
  2. MIRTAZAPINE. [Suspect]
     Active Substance: MIRTAZAPINE
     Route: 065

REACTIONS (5)
  - Palpitations [Unknown]
  - General physical health deterioration [Unknown]
  - Toxicity to various agents [Unknown]
  - Suicide attempt [Unknown]
  - Amnesia [Unknown]
